FAERS Safety Report 5965898-4 (Version None)
Quarter: 2008Q4

REPORT INFORMATION
  Report Type: 
  Country: None (occurrence: None)
  Receive Date: 20081121
  Receipt Date: 20081121
  Transmission Date: 20090506
  Serious: No
  Sender: FDA-Public Use
  Company Number: None

PATIENT
  Age: 62 Year
  Sex: Male
  Weight: 97.52 kg

DRUGS (1)
  1. HYDROCORTISONE/NEOMYCIN/POLYMYXIN B [Suspect]
     Indication: OTITIS EXTERNA
     Dosage: 4 DROPS TID EAR
     Dates: start: 20081114, end: 20081118

REACTIONS (5)
  - CONDITION AGGRAVATED [None]
  - EAR PAIN [None]
  - ERYTHEMA [None]
  - PRURITUS [None]
  - RASH [None]
